FAERS Safety Report 5628688-8 (Version None)
Quarter: 2008Q1

REPORT INFORMATION
  Report Type: 
  Country: None (occurrence: None)
  Receive Date: 20080215
  Receipt Date: 20080215
  Transmission Date: 20080703
  Serious: Yes (Hospitalization)
  Sender: FDA-Public Use
  Company Number: None

PATIENT
  Age: 85 Year
  Sex: Male

DRUGS (12)
  1. LAMISIL [Suspect]
     Indication: ONYCHOMYCOSIS
     Dosage: ORAL;250.0 MILLIGRAM
     Route: 048
     Dates: start: 20071207, end: 20071215
  2. GLIPIZIDE [Concomitant]
  3. NITROGLYCERIN [Concomitant]
  4. METOPROLOL TARTRATE [Concomitant]
  5. LISINOPRIL [Concomitant]
  6. ESOMEPRAZOLE MAGNESIUM [Concomitant]
  7. TRAMADOL HCL [Concomitant]
  8. SIMVASTATIN [Concomitant]
  9. TERAZOSIN [Concomitant]
  10. FEXOFENADINE [Concomitant]
  11. COUNADIN [Concomitant]
  12. FINASTERIDE [Concomitant]

REACTIONS (3)
  - CRYING [None]
  - RASH ERYTHEMATOUS [None]
  - SKIN EXFOLIATION [None]
